FAERS Safety Report 4720195-X (Version None)
Quarter: 2005Q3

REPORT INFORMATION
  Report Type: 
  Country: None (occurrence: None)
  Receive Date: 20050719
  Receipt Date: 20050705
  Transmission Date: 20060218
  Serious: Yes (Hospitalization)
  Sender: FDA-Public Use
  Company Number: 2005JP001397

PATIENT
  Age: 80 Year
  Sex: Female

DRUGS (1)
  1. PROGRAF [Suspect]
     Indication: RHEUMATOID ARTHRITIS
     Dosage: 1.00 MG, UNKNOWN/D, ORAL
     Route: 048

REACTIONS (1)
  - GUILLAIN-BARRE SYNDROME [None]
